FAERS Safety Report 9536681 (Version 1)
Quarter: 2013Q3

REPORT INFORMATION
  Report Type: Spontaneous
  Country: NL (occurrence: NL)
  Receive Date: 20130919
  Receipt Date: 20130919
  Transmission Date: 20140515
  Serious: Yes (Other)
  Sender: FDA-Public Use
  Company Number: NL-JNJFOC-20130907244

PATIENT
  Sex: 0

DRUGS (1)
  1. TOPIRAMATE [Suspect]
     Indication: EPILEPSY
     Route: 048

REACTIONS (18)
  - Drug ineffective [Unknown]
  - Bradyphrenia [Unknown]
  - Depression [Unknown]
  - Aphasia [Unknown]
  - Agitation [Unknown]
  - Aggression [Unknown]
  - Irritability [Unknown]
  - Gastrointestinal disorder [Unknown]
  - Paraesthesia [Unknown]
  - Decreased appetite [Unknown]
  - Skin disorder [Unknown]
  - Weight decreased [Unknown]
  - Apathy [Unknown]
  - Headache [Unknown]
  - Dizziness [Unknown]
  - Erectile dysfunction [Unknown]
  - Amenorrhoea [Unknown]
  - Micturition disorder [Unknown]
